FAERS Safety Report 6185093-6 (Version None)
Quarter: 2009Q2

REPORT INFORMATION
  Report Type: 
  Country: None (occurrence: None)
  Receive Date: 20090511
  Receipt Date: 20090429
  Transmission Date: 20091009
  Serious: Yes (Hospitalization, Other)
  Sender: FDA-Public Use
  Company Number: TR-JNJFOC-20090500471

PATIENT
  Sex: Male

DRUGS (7)
  1. RISPERDAL CONSTA [Suspect]
     Indication: DRUG USE FOR UNKNOWN INDICATION
     Route: 030
  2. RISPERDAL CONSTA [Suspect]
     Indication: HALLUCINATION, AUDITORY
     Route: 030
  3. RISPERDAL CONSTA [Suspect]
     Indication: HALLUCINATION, VISUAL
     Route: 030
  4. RISPERDAL [Suspect]
     Route: 065
  5. RISPERDAL [Suspect]
     Route: 065
  6. RISPERDAL [Suspect]
     Indication: HALLUCINATION, AUDITORY
     Route: 065
  7. RISPERDAL [Suspect]
     Indication: HALLUCINATION, VISUAL
     Route: 065

REACTIONS (2)
  - CONDITION AGGRAVATED [None]
  - DYSPHAGIA [None]
